FAERS Safety Report 4459880-6 (Version None)
Quarter: 2004Q3

REPORT INFORMATION
  Report Type: 
  Country: None (occurrence: None)
  Receive Date: 20040928
  Receipt Date: 20030805
  Transmission Date: 20050211
  Serious: No
  Sender: FDA-Public Use
  Company Number: US-GLAXOSMITHKLINE-A0421272A

PATIENT
  Age: 67 Year
  Sex: Female
  Weight: 55.5 kg

DRUGS (1)
  1. SEREVENT [Suspect]
     Indication: ASTHMA
     Route: 055

REACTIONS (2)
  - LACTOSE INTOLERANCE [None]
  - MALAISE [None]
